FAERS Safety Report 7577387-4 (Version None)
Quarter: 2011Q2

REPORT INFORMATION
  Report Type: 
  Country: None (occurrence: None)
  Receive Date: 20110628
  Receipt Date: 20110126
  Transmission Date: 20111010
  Serious: Yes (Hospitalization)
  Sender: FDA-Public Use
  Company Number: US-BAYER-201039819NA

PATIENT
  Age: 28 Year
  Sex: Female
  Weight: 56.236 kg

DRUGS (12)
  1. METRONIDAZOLE [Concomitant]
     Dosage: 500 MG, UNK
  2. FERROUS SULFATE TAB [Concomitant]
  3. VICODIN ES [Concomitant]
     Indication: PAIN
     Dosage: UNK 1 TAB, Q4HR, PRN
     Route: 048
     Dates: start: 20090417
  4. NAPROXEN [Concomitant]
     Dosage: 500 MG, UNK
  5. YAZ [Suspect]
     Indication: ACNE
  6. FLUTICASONE PROPIONATE [Concomitant]
  7. STOOL SOFTENER [Concomitant]
  8. DROSPIRENONE AND ETHINYL ESTRADIOL [Suspect]
     Indication: ACNE
     Dosage: UNK
     Dates: start: 20050101, end: 20091101
  9. MORPHINE SULFATE [Concomitant]
     Dosage: 4 MG, ONCE
     Route: 042
     Dates: start: 20090417
  10. HYDROCORTISONE [Concomitant]
  11. YASMIN [Suspect]
     Indication: ACNE
     Dosage: UNK
     Dates: start: 20050101, end: 20091101
  12. CLOTRIMAZOLE W/BETAMETHASONE DIPROPIONAT [Concomitant]

REACTIONS (3)
  - GALLBLADDER CHOLESTEROLOSIS [None]
  - GALLBLADDER DISORDER [None]
  - CHOLECYSTITIS CHRONIC [None]
